FAERS Safety Report 17566434 (Version 1)
Quarter: 2020Q1

REPORT INFORMATION
  Report Type: Spontaneous
  Country: US (occurrence: US)
  Receive Date: 20200316
  Receipt Date: 20200316
  Transmission Date: 20200409
  Serious: No
  Sender: FDA-Public Use
  Company Number: None

PATIENT
  Age: 56 Year
  Sex: Male
  Weight: 104.78 kg

DRUGS (1)
  1. PROCHLORPERAZINE (PROCHLORPERAZINE 5MG/ML INJ) [Suspect]
     Active Substance: PROCHLORPERAZINE
     Indication: NAUSEA
     Route: 042
     Dates: start: 20200220, end: 20200220

REACTIONS (3)
  - Feeling jittery [None]
  - Dyskinesia [None]
  - Extrapyramidal disorder [None]

NARRATIVE: CASE EVENT DATE: 20200220
